FAERS Safety Report 13840507 (Version 1)
Quarter: 2017Q3

REPORT INFORMATION
  Report Type: Spontaneous
  Country: US (occurrence: US)
  Receive Date: 20170807
  Receipt Date: 20170807
  Transmission Date: 20171127
  Serious: Yes (Hospitalization)
  Sender: FDA-Public Use
  Company Number: US-BAYER-2017-147080

PATIENT
  Age: 68 Year
  Sex: Male

DRUGS (5)
  1. ACETYLSALICYLIC ACID({=100 MG) [Suspect]
     Active Substance: ASPIRIN
     Indication: ANTIPLATELET THERAPY
  2. PRASUGREL. [Interacting]
     Active Substance: PRASUGREL
     Indication: ANTIPLATELET THERAPY
  3. HEPARIN [Suspect]
     Active Substance: HEPARIN SODIUM
  4. DOPAMINE [Concomitant]
     Active Substance: DOPAMINE\DOPAMINE HYDROCHLORIDE
     Indication: VASCULAR OPERATION
     Dosage: 5/MCG/KG/MIN
     Route: 042
  5. DOPAMINE [Concomitant]
     Active Substance: DOPAMINE\DOPAMINE HYDROCHLORIDE
     Indication: VASCULAR OPERATION
     Dosage: 20/MCG/KG/MINUNK

REACTIONS (4)
  - Distributive shock [None]
  - Retroperitoneal haemorrhage [None]
  - Labelled drug-drug interaction medication error [None]
  - Drug administration error [None]
